FAERS Safety Report 12248373 (Version 1)
Quarter: 2016Q2

REPORT INFORMATION
  Report Type: Spontaneous
  Country: US (occurrence: None)
  Receive Date: 20160407
  Receipt Date: 20160407
  Transmission Date: 20160815
  Serious: Yes (Hospitalization)
  Sender: FDA-Public Use
  Company Number: None

PATIENT
  Age: 36 Year
  Sex: Female

DRUGS (4)
  1. ZENSYS [Concomitant]
  2. MILK CALCIUM TABLET [Suspect]
     Active Substance: CALCIUM\CHOLECALCIFEROL\MINERALS
     Indication: CYSTIC FIBROSIS
  3. VENTOLIN [Concomitant]
     Active Substance: ALBUTEROL SULFATE
  4. DOCUSATE [Concomitant]
     Active Substance: DOCUSATE

REACTIONS (1)
  - Hypersensitivity [None]

NARRATIVE: CASE EVENT DATE: 20160330
